FAERS Safety Report 4667143-9 (Version None)
Quarter: 2005Q2

REPORT INFORMATION
  Report Type: 
  Country: None (occurrence: None)
  Receive Date: 20050520
  Receipt Date: 20040330
  Transmission Date: 20051028
  Serious: Yes (Other)
  Sender: FDA-Public Use
  Company Number: PHEH2004US03652

PATIENT
  Age: 67 Year
  Sex: Female

DRUGS (23)
  1. OXYCONTIN [Concomitant]
     Dosage: 120 MG, UNK
  2. PANTOPRAZOLE SODIUM [Concomitant]
     Dosage: 1, DAILY
  3. ESTROGENS CONJUGATED [Concomitant]
     Dosage: UNK, QD
  4. WELLBUTRIN [Concomitant]
     Dosage: 150 MG, BID
  5. AMBIEN [Concomitant]
     Dosage: UNK, QD
  6. CELEBREX [Concomitant]
     Dosage: UNK, QD
  7. LACTULOSE [Concomitant]
  8. METOCLOPRAMIDE [Concomitant]
  9. DOCUSATE [Concomitant]
  10. VALIUM [Concomitant]
  11. MIRALAX [Concomitant]
  12. OXYIR [Concomitant]
  13. LEXAPRO [Concomitant]
  14. ANZEMET [Concomitant]
  15. MARINOL [Concomitant]
  16. POTASSIUM CHLORIDE [Concomitant]
  17. HYDROCORTISONE [Concomitant]
  18. AMOXICILLIN [Concomitant]
  19. VICODIN [Concomitant]
  20. SLO-MAG [Concomitant]
  21. TORECAN [Concomitant]
  22. LEVAQUIN [Concomitant]
  23. ZOMETA [Suspect]
     Indication: MULTIPLE MYELOMA
     Dosage: 4 MG, QMO
     Route: 042
     Dates: start: 20020322, end: 20031222

REACTIONS (6)
  - BONE DEBRIDEMENT [None]
  - BONE DISORDER [None]
  - IMPAIRED HEALING [None]
  - OSTEOMYELITIS ACUTE [None]
  - OSTEONECROSIS [None]
  - TOOTH EXTRACTION [None]
